FAERS Safety Report 15005839 (Version 1)
Quarter: 2018Q2

REPORT INFORMATION
  Report Type: Spontaneous
  Country: IT (occurrence: IT)
  Receive Date: 20180613
  Receipt Date: 20180613
  Transmission Date: 20180711
  Serious: Yes (Death, Hospitalization)
  Sender: FDA-Public Use
  Company Number: IT-ELI_LILLY_AND_COMPANY-IT201805003918

PATIENT
  Sex: Female

DRUGS (3)
  1. REUMAFLEX                          /00113802/ [Suspect]
     Active Substance: METHOTREXATE SODIUM
     Indication: RHEUMATOID ARTHRITIS
     Dosage: 20 MG, WEEKLY (1/W)
     Route: 048
  2. OLUMIANT [Suspect]
     Active Substance: BARICITINIB
     Indication: RHEUMATOID ARTHRITIS
     Dosage: 4 MG, DAILY
     Route: 048
     Dates: start: 20180118, end: 20180306
  3. MEDIROL (GLIMEPIRIDE) [Suspect]
     Active Substance: GLIMEPIRIDE
     Indication: RHEUMATOID ARTHRITIS
     Dosage: 8 MG, UNK
     Route: 065

REACTIONS (1)
  - Acute respiratory distress syndrome [Fatal]
